FAERS Safety Report 7159389-5 (Version None)
Quarter: 2010Q4

REPORT INFORMATION
  Report Type: 
  Country: None (occurrence: None)
  Receive Date: 20101214
  Receipt Date: 20100826
  Transmission Date: 20110411
  Serious: No
  Sender: FDA-Public Use
  Company Number: US-ASTRAZENECA-2010SE40372

PATIENT
  Age: 59 Year
  Sex: Female

DRUGS (2)
  1. CRESTOR [Suspect]
     Indication: HYPERCHOLESTEROLAEMIA
     Route: 048
     Dates: start: 20100801
  2. ZYRTEC [Concomitant]

REACTIONS (4)
  - FEELING HOT [None]
  - HEADACHE [None]
  - PRURITUS [None]
  - SKIN WARM [None]
